FAERS Safety Report 17499709 (Version 4)
Quarter: 2021Q2

REPORT INFORMATION
  Report Type: Spontaneous
  Country: JP (occurrence: JP)
  Receive Date: 20200304
  Receipt Date: 20210505
  Transmission Date: 20210716
  Serious: Yes (Disabling)
  Sender: FDA-Public Use
  Company Number: JP-LUNDBECK-DKLU3013330

PATIENT
  Age: 4 Year
  Sex: Male
  Weight: 9 kg

DRUGS (6)
  1. LAMOTRIGINE. [Concomitant]
     Active Substance: LAMOTRIGINE
     Indication: INFANTILE SPASMS
     Route: 065
  2. SABRIL [Suspect]
     Active Substance: VIGABATRIN
     Dosage: 280 MG/DAY, 30 MG/KG, TWICE A DAY
     Route: 048
     Dates: start: 20190523
  3. DANTRIUM [Concomitant]
     Active Substance: DANTROLENE SODIUM
     Indication: PRODUCT USED FOR UNKNOWN INDICATION
     Route: 065
  4. SABRIL [Suspect]
     Active Substance: VIGABATRIN
     Indication: INFANTILE SPASMS
     Dosage: 450 MG/DAY, 50 MG/KG, TWICE A DAY
     Route: 048
     Dates: start: 20190125, end: 20190522
  5. TERNELIN [Concomitant]
     Active Substance: TIZANIDINE
     Indication: PRODUCT USED FOR UNKNOWN INDICATION
     Route: 065
  6. VALPROATE SODIUM. [Concomitant]
     Active Substance: VALPROATE SODIUM
     Indication: INFANTILE SPASMS
     Route: 065

REACTIONS (2)
  - Dyspnoea [Recovering/Resolving]
  - Increased bronchial secretion [Recovering/Resolving]

NARRATIVE: CASE EVENT DATE: 20190130
